FAERS Safety Report 17523727 (Version 1)
Quarter: 2020Q1

REPORT INFORMATION
  Report Type: Spontaneous
  Country: HU (occurrence: HU)
  Receive Date: 20200310
  Receipt Date: 20200310
  Transmission Date: 20200409
  Serious: Yes (Hospitalization, Other)
  Sender: FDA-Public Use
  Company Number: HU-MYLANLABS-2020M1025605

PATIENT
  Age: 19 Year
  Sex: Female

DRUGS (2)
  1. DEPAKIN CHRONO                     /00228502/ [Interacting]
     Active Substance: VALPROATE SODIUM
     Indication: SCHIZOPHRENIA
     Dosage: UNK
  2. LAMOTRIGINE. [Suspect]
     Active Substance: LAMOTRIGINE
     Indication: SCHIZOPHRENIA
     Dosage: UNK

REACTIONS (4)
  - Skin necrosis [Recovered/Resolved]
  - Drug interaction [Unknown]
  - Influenza like illness [Recovered/Resolved]
  - Toxic epidermal necrolysis [Recovered/Resolved]
